FAERS Safety Report 6519328-4 (Version None)
Quarter: 2009Q4

REPORT INFORMATION
  Report Type: 
  Country: None (occurrence: None)
  Receive Date: 20091228
  Receipt Date: 20091223
  Transmission Date: 20100525
  Serious: Yes (Hospitalization, Other)
  Sender: FDA-Public Use
  Company Number: GB-WYE-G01786308

PATIENT
  Age: 34 Year
  Sex: Male
  Weight: 95 kg

DRUGS (4)
  1. EFFEXOR [Suspect]
     Indication: DEPRESSION
     Route: 048
     Dates: start: 20050101
  2. MORPHINE [Concomitant]
     Dosage: UNKNOWN
     Dates: start: 20080601
  3. ORAMORPH SR [Concomitant]
     Dosage: UNKNOWN
     Dates: start: 20080601
  4. TRAMADOL HCL [Interacting]
     Indication: PROCEDURAL PAIN
     Dosage: 50-100 MG 6 HOURLY
     Route: 048
     Dates: start: 20080620, end: 20080621

REACTIONS (2)
  - CONVULSION [None]
  - DRUG INTERACTION [None]
